FAERS Safety Report 9688093 (Version 2)
Quarter: 2014Q1

REPORT INFORMATION
  Report Type: Spontaneous
  Country: GB (occurrence: None)
  Receive Date: 20131112
  Receipt Date: 20140204
  Transmission Date: 20141002
  Serious: Yes (Death, Hospitalization)
  Sender: FDA-Public Use
  Company Number: AUR-APL-2013-06064

PATIENT
  Age: 79 Year
  Sex: Female

DRUGS (2)
  1. AMOXICILLIN=CLAVULANIC ACID [Suspect]
     Indication: PRODUCT USED FOR UNKNOWN INDICATION
     Dosage: 1875 MG (625 MG, 3 IN 1 D), ORAL
     Route: 048
     Dates: start: 20130621, end: 20130629
  2. CO-AMOXICLAV [Suspect]
     Indication: PRODUCT USED FOR UNKNOWN INDICATION
     Dosage: 2.4GM (1.2 GM, 2 IN 1D.)
     Route: 042
     Dates: start: 20130618, end: 20130620

REACTIONS (2)
  - Jaundice cholestatic [None]
  - Cardiac arrest [None]
